FAERS Safety Report 9152277 (Version 1)
Quarter: 2013Q1

REPORT INFORMATION
  Report Type: Spontaneous
  Country: US (occurrence: US)
  Receive Date: 20130308
  Receipt Date: 20130308
  Transmission Date: 20140127
  Serious: Yes (Hospitalization)
  Sender: FDA-Public Use
  Company Number: US-B.I. PHARMACEUTICALS,INC./RIDGEFIELD-2013-BI-05666BP

PATIENT
  Age: 53 Year
  Sex: Male

DRUGS (6)
  1. PRADAXA [Suspect]
     Indication: CEREBROVASCULAR ACCIDENT PROPHYLAXIS
     Dosage: 600 MG
     Route: 048
  2. PRADAXA [Suspect]
     Indication: ATRIAL FIBRILLATION
     Dosage: 150 MG
     Route: 048
  3. VALSARTAN [Concomitant]
     Dosage: 160 MG
  4. METOPROLOL XL [Concomitant]
     Dosage: 100 MG
  5. DIGOXIN [Concomitant]
     Dosage: 0.25 MCG
  6. CRESTOR [Concomitant]
     Dosage: 5 MG

REACTIONS (2)
  - Ischaemic stroke [Recovered/Resolved with Sequelae]
  - Dyspepsia [Unknown]
